FAERS Safety Report 6401836-8 (Version None)
Quarter: 2009Q4

REPORT INFORMATION
  Report Type: 
  Country: None (occurrence: None)
  Receive Date: 20091013
  Receipt Date: 20091013
  Transmission Date: 20100525
  Serious: Yes (Disabling)
  Sender: FDA-Public Use
  Company Number: None

PATIENT
  Sex: Female
  Weight: 74.8435 kg

DRUGS (1)
  1. CLONIDINE [Suspect]
     Indication: HYPERTENSION
     Dosage: ONE PATCH EVERY 7 DAYS TRANSDERMAL
     Route: 062
     Dates: start: 20090923, end: 20091006

REACTIONS (2)
  - PRODUCT ADHESION ISSUE [None]
  - PRODUCT SUBSTITUTION ISSUE [None]
